FAERS Safety Report 4391301-4 (Version None)
Quarter: 2004Q2

REPORT INFORMATION
  Report Type: 
  Country: None (occurrence: None)
  Receive Date: 20040621
  Receipt Date: 20031202
  Transmission Date: 20050107
  Serious: Yes (Death, Other)
  Sender: FDA-Public Use
  Company Number: USA-2002-0001827

PATIENT
  Age: 44 Year
  Sex: Female
  Weight: 68 kg

DRUGS (23)
  1. OXYCONTIN [Suspect]
     Indication: PAIN
     Dosage: 10 MG, SEE TEXT, ORAL
     Route: 048
     Dates: start: 20000224, end: 20000310
  2. OXYCONTIN [Suspect]
     Indication: PAIN
     Dosage: SEE TEXT, ORAL
     Route: 048
     Dates: start: 20000313
  3. OXYCONTIN [Suspect]
     Dosage: SEE TEXT, ORAL
     Route: 048
     Dates: start: 20000627
  4. OXYIR CAPSULES 5 MG (OXYCODONE HYDROCHLORIDE) [Suspect]
     Indication: PAIN
     Dosage: 5 MG, Q6- 8H, ORAL
     Route: 048
     Dates: start: 20000608
  5. OXYCODONE HCL [Suspect]
  6. TEGRETOL [Suspect]
  7. DESIPRAMINE HCL [Concomitant]
  8. BACLOFEN [Concomitant]
  9. REMERON [Concomitant]
  10. LORCET-HD [Concomitant]
  11. TOPAMAX [Concomitant]
  12. NEURONTIN [Concomitant]
  13. KLONOPIN [Concomitant]
  14. VALIUM [Concomitant]
  15. PERCOCET [Concomitant]
  16. SOMA [Concomitant]
  17. PREMARIN [Concomitant]
  18. XANAX [Concomitant]
  19. TYLENOL W/CEDEINE NO. 3 [Concomitant]
  20. CYCLOBENZAPRINE HCL [Concomitant]
  21. ULTRAM [Concomitant]
  22. ELAVIL [Concomitant]
  23. ZANAFLEX [Concomitant]

REACTIONS (14)
  - ACCIDENTAL OVERDOSE [None]
  - DEPRESSION [None]
  - DIARRHOEA [None]
  - DIFFICULTY IN WALKING [None]
  - DRUG INEFFECTIVE [None]
  - DRUG WITHDRAWAL SYNDROME [None]
  - EMOTIONAL DISTRESS [None]
  - FALL [None]
  - HYPOAESTHESIA [None]
  - INSOMNIA [None]
  - PAIN [None]
  - PRURITUS [None]
  - SWELLING [None]
  - THROAT IRRITATION [None]
